FAERS Safety Report 5122541-4 (Version None)
Quarter: 2006Q4

REPORT INFORMATION
  Report Type: 
  Country: None (occurrence: None)
  Receive Date: 20061004
  Receipt Date: 20061004
  Transmission Date: 20070319
  Serious: Yes (Other)
  Sender: FDA-Public Use
  Company Number: None

PATIENT
  Age: 97 Year
  Sex: Male
  Weight: 61.2 kg

DRUGS (8)
  1. VERSED [Suspect]
     Dosage: 2 MG, PRE-PROCEDURE, INTRAVEN
     Route: 042
     Dates: start: 20060807, end: 20060807
  2. DIGOXIN [Concomitant]
  3. TOPROL-XL [Concomitant]
  4. LISINOPRIL [Concomitant]
  5. SPIRONOLACTONE [Concomitant]
  6. FUROSEMIDE [Concomitant]
  7. HEPARIN NA, PORK INJ [Concomitant]
  8. DILTIAZEM HCL [Concomitant]

REACTIONS (1)
  - SEDATION [None]
